FAERS Safety Report 5473521-0 (Version None)
Quarter: 2007Q3

REPORT INFORMATION
  Report Type: 
  Country: None (occurrence: None)
  Receive Date: 20070830
  Receipt Date: 20070314
  Transmission Date: 20080115
  Serious: Yes (Hospitalization)
  Sender: FDA-Public Use
  Company Number: KADN20070040

PATIENT
  Age: 26 Year
  Sex: Female
  Weight: 68.0396 kg

DRUGS (7)
  1. KADIAN [Suspect]
     Indication: PAIN
     Dosage: 80 MG, BID, PER ORAL
     Route: 048
     Dates: start: 20070221, end: 20070222
  2. OXYCODONE HCL [Suspect]
     Indication: HEADACHE
     Dosage: PER ORAL
     Route: 048
     Dates: start: 20070221
  3. EFFEXOR [Suspect]
     Indication: HEADACHE
     Dosage: PER ORAL
     Route: 048
  4. LUNESTA [Concomitant]
  5. NEURONTIN [Concomitant]
  6. CODEINE SUL TAB [Concomitant]
  7. ALCOHOL [Concomitant]

REACTIONS (8)
  - CHILLS [None]
  - DEHYDRATION [None]
  - HYPOVENTILATION [None]
  - HYPOXIA [None]
  - LETHARGY [None]
  - LOSS OF CONSCIOUSNESS [None]
  - OVERDOSE [None]
  - SINUS ARRHYTHMIA [None]
